FAERS Safety Report 5227573-3 (Version None)
Quarter: 2007Q1

REPORT INFORMATION
  Report Type: 
  Country: None (occurrence: None)
  Receive Date: 20070202
  Receipt Date: 20070123
  Transmission Date: 20070707
  Serious: Yes (Disabling)
  Sender: FDA-Public Use
  Company Number: AU-JNJFOC-20070104213

PATIENT
  Sex: Male
  Weight: 34 kg

DRUGS (2)
  1. CONCERTA [Suspect]
     Indication: ATTENTION DEFICIT/HYPERACTIVITY DISORDER
     Route: 048
  2. RISPERDAL [Concomitant]

REACTIONS (6)
  - ANGER [None]
  - DYSKINESIA [None]
  - EMOTIONAL DISORDER [None]
  - LOGORRHOEA [None]
  - OBSESSIVE THOUGHTS [None]
  - TIC [None]
